FAERS Safety Report 11933636 (Version 3)
Quarter: 2016Q1

REPORT INFORMATION
  Report Type: Spontaneous
  Country: US (occurrence: US)
  Receive Date: 20160121
  Receipt Date: 20160204
  Transmission Date: 20160526
  Serious: Yes (Death, Hospitalization, Disabling, Other)
  Sender: FDA-Public Use
  Company Number: US-009507513-1601USA006985

PATIENT
  Sex: Male
  Weight: 126.8 kg

DRUGS (4)
  1. JANUVIA [Suspect]
     Active Substance: SITAGLIPTIN PHOSPHATE
     Indication: TYPE 2 DIABETES MELLITUS
     Dosage: 50 MG, QD
     Route: 048
     Dates: start: 20080212, end: 20091114
  2. JANUVIA [Suspect]
     Active Substance: SITAGLIPTIN PHOSPHATE
     Dosage: 100 MG, QD
     Route: 048
     Dates: start: 20091115, end: 20100314
  3. JANUVIA [Suspect]
     Active Substance: SITAGLIPTIN PHOSPHATE
     Dosage: 50 MG, QD
     Route: 048
     Dates: start: 20100315, end: 20100623
  4. JANUVIA [Suspect]
     Active Substance: SITAGLIPTIN PHOSPHATE
     Dosage: 100 MG, QD
     Route: 048
     Dates: start: 20100624, end: 20140619

REACTIONS (32)
  - Pancreatic carcinoma [Unknown]
  - Poor personal hygiene [Unknown]
  - Tachycardia [Unknown]
  - Cardiac failure congestive [Unknown]
  - Effusion [Unknown]
  - Emotional distress [Unknown]
  - Diabetes mellitus [Recovered/Resolved]
  - Atelectasis [Unknown]
  - Hepatic failure [Unknown]
  - Hypercholesterolaemia [Unknown]
  - Generalised oedema [Unknown]
  - Pelvic fluid collection [Unknown]
  - Gastric bypass [Unknown]
  - Gastric ulcer [Unknown]
  - Fluid retention [Unknown]
  - Pleural effusion [Unknown]
  - Internal haemorrhage [Unknown]
  - Diabetes mellitus [Unknown]
  - Acute kidney injury [Unknown]
  - Anaemia [Unknown]
  - Knee operation [Unknown]
  - Localised intraabdominal fluid collection [Unknown]
  - Cellulitis [Unknown]
  - Infection [Unknown]
  - Malignant melanoma [Unknown]
  - Hypertension [Unknown]
  - Haematuria [Unknown]
  - Klebsiella infection [Unknown]
  - Neuropathy peripheral [Unknown]
  - Liver injury [Unknown]
  - Death [Fatal]
  - Conjunctival pallor [Unknown]

NARRATIVE: CASE EVENT DATE: 2013
